FAERS Safety Report 5825034-1 (Version None)
Quarter: 2008Q3

REPORT INFORMATION
  Report Type: 
  Country: None (occurrence: None)
  Receive Date: 20080724
  Receipt Date: 20080724
  Transmission Date: 20090109
  Serious: No
  Sender: FDA-Public Use
  Company Number: None

PATIENT
  Age: 49 Year
  Sex: Female
  Weight: 68.0396 kg

DRUGS (2)
  1. CARIMUNE [Suspect]
     Indication: DERMATOMYOSITIS
     Dosage: 60 GM TWO IV DRIP
     Route: 041
     Dates: start: 20080422, end: 20080423
  2. GAMMAGARD [Suspect]
     Dates: start: 20080513, end: 20080514

REACTIONS (3)
  - ABASIA [None]
  - DRUG INEFFECTIVE [None]
  - MOBILITY DECREASED [None]
